FAERS Safety Report 6475029-2 (Version None)
Quarter: 2009Q4

REPORT INFORMATION
  Report Type: 
  Country: None (occurrence: None)
  Receive Date: 20091204
  Receipt Date: 20090514
  Transmission Date: 20100525
  Serious: Yes (Life-Threatening, Other)
  Sender: FDA-Public Use
  Company Number: US-ELI_LILLY_AND_COMPANY-US200903001240

PATIENT
  Sex: Male
  Weight: 66.213 kg

DRUGS (1)
  1. HUMATROPE [Suspect]
     Indication: BODY HEIGHT BELOW NORMAL
     Dates: start: 20040101, end: 20060101

REACTIONS (4)
  - CARDIAC ARREST [None]
  - HYPERTROPHIC CARDIOMYOPATHY [None]
  - HYPOKALAEMIA [None]
  - VENTRICULAR FIBRILLATION [None]
